FAERS Safety Report 4736445-X (Version None)
Quarter: 2005Q3

REPORT INFORMATION
  Report Type: 
  Country: None (occurrence: None)
  Receive Date: 20050808
  Receipt Date: 20050620
  Transmission Date: 20060218
  Serious: Yes (Hospitalization)
  Sender: FDA-Public Use
  Company Number: PHRM2005FR01903

PATIENT
  Age: 76 Year
  Sex: Male

DRUGS (6)
  1. GLEEVEC [Suspect]
     Indication: CHRONIC MYELOID LEUKAEMIA
     Dosage: 400 MG DAILY
     Route: 048
     Dates: start: 20041213, end: 20050101
  2. GLEEVEC [Suspect]
     Dosage: UNK, UNK
     Route: 048
     Dates: start: 20050504, end: 20050512
  3. GLEEVEC [Suspect]
     Route: 048
     Dates: start: 20050524, end: 20050524
  4. GLEEVEC [Suspect]
     Route: 048
     Dates: start: 20050527
  5. OXYGEN [Suspect]
     Dosage: 2 LITERS/MN
  6. BRONCHODILATORS [Suspect]
     Indication: HYPOVENTILATION

REACTIONS (9)
  - ASBESTOSIS [None]
  - BRONCHITIS [None]
  - DYSPNOEA [None]
  - FOREIGN BODY TRAUMA [None]
  - HYPOVENTILATION [None]
  - INFLAMMATION [None]
  - INTERSTITIAL LUNG DISEASE [None]
  - RASH [None]
  - RESPIRATORY FAILURE [None]
